FAERS Safety Report 19867296 (Version 3)
Quarter: 2022Q1

REPORT INFORMATION
  Report Type: Report from Study
  Country: CO (occurrence: CO)
  Receive Date: 20210921
  Receipt Date: 20220328
  Transmission Date: 20220424
  Serious: Yes (Hospitalization, Other)
  Sender: FDA-Public Use
  Company Number: PHHY2019CO088517

PATIENT
  Age: 43 Year
  Sex: Female
  Weight: 60 kg

DRUGS (6)
  1. XOLAIR [Suspect]
     Active Substance: OMALIZUMAB
     Indication: Asthma
     Dosage: 600 MG, BIW
     Route: 058
     Dates: start: 20171213, end: 201806
  2. XOLAIR [Suspect]
     Active Substance: OMALIZUMAB
     Dosage: 150 MG, BIW
     Route: 058
     Dates: end: 201806
  3. XOLAIR [Suspect]
     Active Substance: OMALIZUMAB
     Dosage: 1200 MG, QMO
     Route: 058
  4. XOLAIR [Suspect]
     Active Substance: OMALIZUMAB
     Dosage: 600 MG, BIW
     Route: 058
  5. MONTELUKAST SODIUM [Suspect]
     Active Substance: MONTELUKAST SODIUM
     Indication: Asthma
     Dosage: UNK
     Route: 065
  6. SERETIDE [Concomitant]
     Active Substance: FLUTICASONE PROPIONATE\SALMETEROL XINAFOATE
     Indication: Asthma
     Dosage: UNK
     Route: 065

REACTIONS (11)
  - Neoplasm malignant [Unknown]
  - Illness [Not Recovered/Not Resolved]
  - Paralysis [Not Recovered/Not Resolved]
  - Osteoarthritis [Not Recovered/Not Resolved]
  - Concomitant disease aggravated [Not Recovered/Not Resolved]
  - Immunoglobulins abnormal [Not Recovered/Not Resolved]
  - Sensitivity to weather change [Unknown]
  - Mental disorder [Unknown]
  - Anxiety [Unknown]
  - Immunoglobulins decreased [Unknown]
  - Incorrect dose administered [Unknown]

NARRATIVE: CASE EVENT DATE: 20180701
